FAERS Safety Report 17511758 (Version 7)
Quarter: 2022Q2

REPORT INFORMATION
  Report Type: Report from Study
  Country: CO (occurrence: CO)
  Receive Date: 20200308
  Receipt Date: 20220612
  Transmission Date: 20220720
  Serious: Yes (Life-Threatening, Other)
  Sender: FDA-Public Use
  Company Number: NVSC2020CO024394

PATIENT
  Age: 61 Year
  Sex: Female
  Weight: 70 kg

DRUGS (6)
  1. TASIGNA [Suspect]
     Active Substance: NILOTINIB
     Indication: Chronic myeloid leukaemia
     Dosage: 300 MG, QD (DAILY)
     Route: 048
     Dates: start: 2011
  2. TASIGNA [Suspect]
     Active Substance: NILOTINIB
     Dosage: 150 MG, Q12H
     Route: 048
     Dates: start: 2011
  3. TASIGNA [Suspect]
     Active Substance: NILOTINIB
     Dosage: 300 MG, Q12H
     Route: 048
  4. TASIGNA [Suspect]
     Active Substance: NILOTINIB
     Dosage: 300 MG, Q12H
     Route: 065
     Dates: start: 20150227
  5. TASIGNA [Suspect]
     Active Substance: NILOTINIB
     Dosage: UNK
     Route: 048
  6. ACETAMINOPHEN [Concomitant]
     Active Substance: ACETAMINOPHEN
     Indication: Product used for unknown indication
     Dosage: UNK
     Route: 065

REACTIONS (25)
  - Near death experience [Unknown]
  - Blindness [Unknown]
  - Loss of consciousness [Unknown]
  - Chronic myeloid leukaemia recurrent [Unknown]
  - Decreased immune responsiveness [Unknown]
  - Gait disturbance [Unknown]
  - Respiratory rate increased [Unknown]
  - Bursitis [Unknown]
  - Feeling abnormal [Not Recovered/Not Resolved]
  - Erythema [Unknown]
  - Influenza [Recovered/Resolved]
  - Asthenia [Unknown]
  - Diarrhoea [Unknown]
  - Arthralgia [Unknown]
  - Hypersensitivity [Not Recovered/Not Resolved]
  - Pruritus [Recovering/Resolving]
  - Headache [Unknown]
  - Pain in extremity [Unknown]
  - Influenza [Unknown]
  - Dizziness [Unknown]
  - Pyrexia [Unknown]
  - Vomiting [Unknown]
  - Abdominal pain upper [Unknown]
  - Illness [Unknown]
  - Decreased activity [Unknown]

NARRATIVE: CASE EVENT DATE: 20190601
